FAERS Safety Report 4383994-2 (Version None)
Quarter: 2004Q2

REPORT INFORMATION
  Report Type: 
  Country: None (occurrence: None)
  Receive Date: 20040621
  Receipt Date: 20040603
  Transmission Date: 20050107
  Serious: Yes (Other)
  Sender: FDA-Public Use
  Company Number: M2004-0662

PATIENT
  Age: 13 Year
  Sex: Female

DRUGS (6)
  1. RIMACTANE [Suspect]
     Indication: MENINGITIS TUBERCULOUS
  2. ISONIAZID [Suspect]
     Indication: MENINGITIS TUBERCULOUS
  3. PYRAZINAMIDE (PYRAZINAMIDE, PYRAZINAMIDE) [Suspect]
  4. ETHAMBUTOL (ETHAMBUTOL DIHYDROCHLORIDE) [Suspect]
  5. PYRIDOXINE [Concomitant]
  6. DEXAMETHASONE TAB [Concomitant]

REACTIONS (7)
  - ARTHRALGIA [None]
  - BLOOD PARATHYROID HORMONE INCREASED [None]
  - DECREASED ACTIVITY [None]
  - HEADACHE [None]
  - HYPOCALCAEMIA [None]
  - INSOMNIA [None]
  - VITAMIN D DECREASED [None]
